FAERS Safety Report 9400052 (Version 1)
Quarter: 2013Q3

REPORT INFORMATION
  Report Type: Spontaneous
  Country: US (occurrence: US)
  Receive Date: 20130715
  Receipt Date: 20130715
  Transmission Date: 20140515
  Serious: Yes (Other)
  Sender: FDA-Public Use
  Company Number: US-TEVA-412653USA

PATIENT
  Age: 75 Year
  Sex: Male
  Weight: 96.25 kg

DRUGS (11)
  1. SYNRIBO [Suspect]
     Indication: PRODUCT USED FOR UNKNOWN INDICATION
     Dates: start: 20130610
  2. ASPIRIN [Concomitant]
     Indication: PROPHYLAXIS
     Dosage: 325 MILLIGRAM DAILY;
     Route: 048
  3. MULTIVITAMIN [Concomitant]
     Indication: VITAMIN SUPPLEMENTATION
     Dosage: 1 TABLET DAILY;
     Route: 048
  4. NOVOFINE [Concomitant]
     Indication: DIABETES MELLITUS
  5. BUMEX [Concomitant]
     Indication: CARDIAC FAILURE CONGESTIVE
     Dosage: 2 MILLIGRAM DAILY;
     Route: 048
  6. ZETIA [Concomitant]
     Indication: HYPERCHOLESTEROLAEMIA
     Dosage: 10 MILLIGRAM DAILY;
     Route: 048
  7. HYDRALAZINE [Concomitant]
     Indication: HYPERTENSION
     Dosage: 100 MILLIGRAM DAILY;
     Route: 048
  8. NOVOLOG [Concomitant]
     Indication: DIABETES MELLITUS
     Dosage: 70 IU (INTERNATIONAL UNIT) DAILY;
     Route: 058
  9. LOPRESSOR [Concomitant]
     Indication: HYPERTENSION
     Dosage: 200 MILLIGRAM DAILY;
     Route: 048
  10. LISINOPRIL [Concomitant]
     Indication: HYPERTENSION
     Dosage: 40 MILLIGRAM DAILY;
     Route: 048
  11. CARDIZEM [Concomitant]
     Indication: CARDIAC FAILURE CONGESTIVE
     Dosage: 240 MILLIGRAM DAILY;
     Route: 048

REACTIONS (2)
  - Blood creatinine increased [Not Recovered/Not Resolved]
  - Blood glucose increased [Not Recovered/Not Resolved]
